FAERS Safety Report 7116773-3 (Version None)
Quarter: 2010Q4

REPORT INFORMATION
  Report Type: 
  Country: None (occurrence: None)
  Receive Date: 20101122
  Receipt Date: 20101102
  Transmission Date: 20110411
  Serious: Yes (Hospitalization, Other)
  Sender: FDA-Public Use
  Company Number: US-AMGEN-KDL436141

PATIENT

DRUGS (7)
  1. PROCRIT [Suspect]
     Indication: ANAEMIA
     Dosage: 14000 UNK, UNK
     Dates: start: 20050101
  2. PROCRIT [Suspect]
     Dosage: 50000 UNK, QWK
     Dates: end: 20071001
  3. IMURAN [Concomitant]
     Indication: RENAL TRANSPLANT
     Dosage: 75 MG, UNK
     Dates: start: 19860101
  4. PREDNISONE [Concomitant]
     Indication: RENAL TRANSPLANT
     Dosage: 5 MG, QWK
  5. CYSTAGON                           /00492501/ [Concomitant]
     Indication: CYSTINOSIS
     Dosage: 450 UNK, Q6H
  6. CYCLOSPORINE [Concomitant]
     Indication: RENAL TRANSPLANT
     Dosage: 75 MG, BID
  7. SYNTHROID [Concomitant]
     Indication: HYPOTHYROIDISM
     Dosage: UNK
     Dates: start: 19860101

REACTIONS (5)
  - ANAEMIA [None]
  - HAEMORRHAGE [None]
  - INJURY [None]
  - PARAPROTEINAEMIA [None]
  - THERAPEUTIC RESPONSE DECREASED [None]
